FAERS Safety Report 13510763 (Version 1)
Quarter: 2017Q2

REPORT INFORMATION
  Report Type: Spontaneous
  Country: US (occurrence: US)
  Receive Date: 20170503
  Receipt Date: 20170503
  Transmission Date: 20170830
  Serious: Yes (Hospitalization)
  Sender: FDA-Public Use
  Company Number: None

PATIENT
  Age: 64 Year
  Sex: Female
  Weight: 108.86 kg

DRUGS (10)
  1. ZITHROMAX [Suspect]
     Active Substance: AZITHROMYCIN DIHYDRATE
     Indication: COUGH
     Dosage: 2 PILLS ON DAY ONE  1 PILL NEXT FOUR DAYS (6)? 2 PILLS DAY ONE?1 PILL DAILY MOUTH
     Route: 048
     Dates: start: 20170129, end: 20170202
  2. CANE [Concomitant]
  3. NIFEDIPINE. [Concomitant]
     Active Substance: NIFEDIPINE
  4. FERROUS SULFATE. [Concomitant]
     Active Substance: FERROUS SULFATE
  5. ZITHROMAX [Suspect]
     Active Substance: AZITHROMYCIN DIHYDRATE
     Indication: RHINORRHOEA
     Dosage: 2 PILLS ON DAY ONE  1 PILL NEXT FOUR DAYS (6)? 2 PILLS DAY ONE?1 PILL DAILY MOUTH
     Route: 048
     Dates: start: 20170129, end: 20170202
  6. ASPIRIN. [Concomitant]
     Active Substance: ASPIRIN
  7. ZITHROMAX [Suspect]
     Active Substance: AZITHROMYCIN DIHYDRATE
     Indication: PRODUCTIVE COUGH
     Dosage: 2 PILLS ON DAY ONE  1 PILL NEXT FOUR DAYS (6)? 2 PILLS DAY ONE?1 PILL DAILY MOUTH
     Route: 048
     Dates: start: 20170129, end: 20170202
  8. WALKER [Concomitant]
  9. ZITHROMAX [Suspect]
     Active Substance: AZITHROMYCIN DIHYDRATE
     Indication: SNEEZING
     Dosage: 2 PILLS ON DAY ONE  1 PILL NEXT FOUR DAYS (6)? 2 PILLS DAY ONE?1 PILL DAILY MOUTH
     Route: 048
     Dates: start: 20170129, end: 20170202
  10. METOPROLOL ER [Concomitant]
     Active Substance: METOPROLOL SUCCINATE

REACTIONS (7)
  - Palpitations [None]
  - Rash [None]
  - Musculoskeletal pain [None]
  - Pain in extremity [None]
  - Abdominal pain [None]
  - Anogenital warts [None]
  - Abdominal pain upper [None]

NARRATIVE: CASE EVENT DATE: 20170208
